FAERS Safety Report 22694311 (Version 6)
Quarter: 2024Q1

REPORT INFORMATION
  Report Type: Report from Study
  Country: US (occurrence: US)
  Receive Date: 20230711
  Receipt Date: 20240308
  Transmission Date: 20240410
  Serious: Yes (Other)
  Sender: FDA-Public Use
  Company Number: US-ABBVIE-5286536

PATIENT
  Sex: Female

DRUGS (8)
  1. IMBRUVICA [Suspect]
     Active Substance: IBRUTINIB
     Indication: Chronic lymphocytic leukaemia
     Dosage: END DATE 2023
     Route: 048
     Dates: start: 202303
  2. IMBRUVICA [Suspect]
     Active Substance: IBRUTINIB
     Indication: Chronic lymphocytic leukaemia
     Dosage: END DATE: 2023
     Route: 048
     Dates: start: 2023, end: 2023
  3. IMBRUVICA [Suspect]
     Active Substance: IBRUTINIB
     Indication: Chronic lymphocytic leukaemia
     Dosage: END DATE-  MAR 2023
     Route: 048
  4. IMBRUVICA [Suspect]
     Active Substance: IBRUTINIB
     Indication: Chronic lymphocytic leukaemia
     Route: 048
     Dates: start: 202306
  5. IMBRUVICA [Suspect]
     Active Substance: IBRUTINIB
     Indication: Chronic lymphocytic leukaemia
     Route: 048
  6. IMBRUVICA [Suspect]
     Active Substance: IBRUTINIB
     Indication: Chronic lymphocytic leukaemia
     Route: 048
  7. BUMEX [Concomitant]
     Active Substance: BUMETANIDE
     Indication: Peripheral swelling
     Route: 065
  8. ANASTROZOLE [Concomitant]
     Active Substance: ANASTROZOLE
     Indication: Breast cancer
     Route: 065

REACTIONS (11)
  - Basal cell carcinoma [Not Recovered/Not Resolved]
  - Ingrowing nail [Recovered/Resolved]
  - White blood cell count abnormal [Unknown]
  - Malignant melanoma [Unknown]
  - Blood viscosity decreased [Unknown]
  - Skin disorder [Not Recovered/Not Resolved]
  - Procedural haemorrhage [Recovered/Resolved]
  - Leukaemia [Unknown]
  - Electrocardiogram T wave abnormal [Unknown]
  - Papule [Unknown]
  - Erythema [Unknown]

NARRATIVE: CASE EVENT DATE: 20230101
